FAERS Safety Report 9104119 (Version 2)
Quarter: 2013Q4

REPORT INFORMATION
  Report Type: Report from Study
  Country: CA (occurrence: CA)
  Receive Date: 20130219
  Receipt Date: 20131129
  Transmission Date: 20140711
  Serious: Yes (Hospitalization, Other)
  Sender: FDA-Public Use
  Company Number: PHHY2011CA110501

PATIENT
  Sex: Female

DRUGS (5)
  1. SANDOSTATIN [Suspect]
     Indication: VASCULAR OCCLUSION
     Dosage: UNK UKN, TID
     Route: 058
     Dates: start: 20111206
  2. SANDOSTATIN LAR [Suspect]
     Indication: VASCULAR OCCLUSION
     Dosage: 20 MG, EVERY 4 WEEKS
     Route: 030
     Dates: start: 20111216
  3. SANDOSTATIN LAR [Suspect]
     Dosage: 20 MG, ONCE A MONTH
     Route: 030
  4. SANDOSTATIN LAR [Suspect]
     Dosage: 30 MG, EVERY 4 WEEKS
     Route: 030
  5. SANDOSTATIN LAR [Suspect]
     Dosage: 30 MG, ONCE A MONTH
     Route: 030

REACTIONS (7)
  - Intestinal obstruction [Unknown]
  - Abdominal pain [Unknown]
  - Abdominal pain upper [Recovered/Resolved]
  - Subileus [Recovered/Resolved]
  - Blood pressure increased [Unknown]
  - Diarrhoea [Unknown]
  - Injection site pain [Unknown]
